FAERS Safety Report 7071167-4 (Version None)
Quarter: 2010Q4

REPORT INFORMATION
  Report Type: 
  Country: None (occurrence: None)
  Receive Date: 20101029
  Receipt Date: 20101020
  Transmission Date: 20110411
  Serious: Yes (Other)
  Sender: FDA-Public Use
  Company Number: US-SANOFI-AVENTIS-2010SA060333

PATIENT
  Age: 81 Year
  Sex: Male
  Weight: 77 kg

DRUGS (2)
  1. PLAVIX [Suspect]
     Indication: THROMBOSIS PROPHYLAXIS
     Route: 048
     Dates: end: 20090701
  2. PLAVIX [Suspect]
     Route: 048
     Dates: start: 20100929

REACTIONS (5)
  - CARDIAC DISORDER [None]
  - CARDIAC VALVE DISEASE [None]
  - INJURY [None]
  - JOINT INJURY [None]
  - ROAD TRAFFIC ACCIDENT [None]
